FAERS Safety Report 9060264 (Version 1)
Quarter: 2013Q1

REPORT INFORMATION
  Report Type: Spontaneous
  Country: US (occurrence: None)
  Receive Date: 20130207
  Receipt Date: 20130207
  Transmission Date: 20140127
  Serious: Yes (Other)
  Sender: FDA-Public Use
  Company Number: None

PATIENT
  Sex: Female
  Weight: 88.45 kg

DRUGS (1)
  1. PRILOSEC [Suspect]
     Indication: GASTROOESOPHAGEAL REFLUX DISEASE
     Dosage: 20MG. BEFORE DINNER

REACTIONS (13)
  - Fracture [None]
  - Heart rate increased [None]
  - Heart rate irregular [None]
  - Feeling jittery [None]
  - Muscular weakness [None]
  - Muscle spasms [None]
  - Myalgia [None]
  - Headache [None]
  - Nausea [None]
  - Rash [None]
  - Throat tightness [None]
  - Dyspnoea [None]
  - Muscle spasms [None]
